FAERS Safety Report 7471275-X (Version None)
Quarter: 2011Q2

REPORT INFORMATION
  Report Type: 
  Country: None (occurrence: None)
  Receive Date: 20110510
  Receipt Date: 20110428
  Transmission Date: 20111010
  Serious: Yes (Hospitalization)
  Sender: FDA-Public Use
  Company Number: FR-GILEAD-2006-0010423

PATIENT
  Sex: Male
  Weight: 46 kg

DRUGS (5)
  1. FUZEON [Concomitant]
     Indication: HIV INFECTION
     Dates: start: 20060614, end: 20060714
  2. KALETRA [Concomitant]
     Dates: start: 20060614
  3. SUSTIVA [Concomitant]
  4. TRUVADA [Suspect]
     Indication: HIV INFECTION
     Route: 048
     Dates: start: 20060614
  5. SUSTIVA [Concomitant]
     Indication: HIV INFECTION
     Route: 048
     Dates: start: 20060718

REACTIONS (1)
  - KAPOSI'S SARCOMA [None]
